FAERS Safety Report 7088814-3 (Version None)
Quarter: 2010Q4

REPORT INFORMATION
  Report Type: 
  Country: None (occurrence: None)
  Receive Date: 20101029
  Receipt Date: 20101013
  Transmission Date: 20110411
  Serious: Yes (Death, Hospitalization)
  Sender: FDA-Public Use
  Company Number: 2010004532

PATIENT
  Sex: Male

DRUGS (3)
  1. ERLOTINIB(ERLOTINIB) (TABLET) (ERLOTINIB) [Suspect]
     Indication: PANCREATIC CARCINOMA METASTATIC
     Dosage: 100 MG, 1X PER 28 DAYS, ORAL
     Route: 048
     Dates: start: 20100813, end: 20100923
  2. GEMCITABINE HCL [Suspect]
     Indication: PANCREATIC CARCINOMA METASTATIC
     Dates: start: 20100813, end: 20100923
  3. PANITUMUMAB [Suspect]
     Indication: PANCREATIC CARCINOMA METASTATIC
     Dates: start: 20100813, end: 20100923

REACTIONS (5)
  - ADENOCARCINOMA PANCREAS [None]
  - BLOOD ALKALINE PHOSPHATASE INCREASED [None]
  - DISEASE PROGRESSION [None]
  - DYSPNOEA [None]
  - HYPOKALAEMIA [None]
